FAERS Safety Report 12114144 (Version 1)
Quarter: 2016Q1

REPORT INFORMATION
  Report Type: Spontaneous
  Country: US (occurrence: None)
  Receive Date: 20160224
  Receipt Date: 20160224
  Transmission Date: 20160526
  Serious: Yes (Life-Threatening)
  Sender: FDA-Public Use
  Company Number: None

PATIENT
  Age: 52 Year
  Sex: Male
  Weight: 81.1 kg

DRUGS (1)
  1. PROPOFOL. [Suspect]
     Active Substance: PROPOFOL
     Indication: SEDATION
     Dosage: TITRATE MCG, PER HOUR
     Route: 042
     Dates: start: 20151125, end: 20151202

REACTIONS (6)
  - Acute hepatic failure [None]
  - Propofol infusion syndrome [None]
  - Pulseless electrical activity [None]
  - Cardiac arrest [None]
  - Acute kidney injury [None]
  - Renal tubular necrosis [None]

NARRATIVE: CASE EVENT DATE: 20151203
